FAERS Safety Report 5031787-5 (Version None)
Quarter: 2006Q2

REPORT INFORMATION
  Report Type: 
  Country: None (occurrence: None)
  Receive Date: 20060619
  Receipt Date: 20060613
  Transmission Date: 20061013
  Serious: Yes (Death, Hospitalization)
  Sender: FDA-Public Use
  Company Number: 2006-06-0715

PATIENT
  Age: 3 Year
  Sex: Female

DRUGS (3)
  1. BETAMETHASONE [Suspect]
     Dosage: 1.125 MG QD ORAL
     Route: 048
     Dates: start: 20060520, end: 20060521
  2. NISAPULVOL (BENZYL HYDROXYBENZOATE) TOPICAL POWDER [Suspect]
     Indication: VARICELLA
     Dosage: TOPICAL
     Route: 061
  3. DOLIPRANE [Concomitant]

REACTIONS (12)
  - ACUTE RESPIRATORY DISTRESS SYNDROME [None]
  - CARDIAC ARREST [None]
  - CELLULITIS [None]
  - FACE OEDEMA [None]
  - HAEMODYNAMIC INSTABILITY [None]
  - HEART RATE INCREASED [None]
  - HYPOREFLEXIA [None]
  - HYPOTENSION [None]
  - NECROTISING FASCIITIS [None]
  - PURPURA [None]
  - SEPTIC SHOCK [None]
  - SKIN NECROSIS [None]
